FAERS Safety Report 7769368-2 (Version None)
Quarter: 2011Q3

REPORT INFORMATION
  Report Type: 
  Country: None (occurrence: None)
  Receive Date: 20110922
  Receipt Date: 20110325
  Transmission Date: 20111222
  Serious: Yes (Hospitalization)
  Sender: FDA-Public Use
  Company Number: US-ASTRAZENECA-2011SE17122

PATIENT
  Age: 34 Year
  Sex: Male
  Weight: 74.8 kg

DRUGS (3)
  1. SEROQUEL [Suspect]
     Indication: SLEEP DISORDER
     Route: 048
     Dates: start: 20080101
  2. SLEEP MEDICATION [Concomitant]
     Indication: SLEEP DISORDER
     Route: 048
  3. ANXIETY MEDICATION [Concomitant]
     Indication: SLEEP DISORDER
     Route: 048

REACTIONS (1)
  - CONVULSION [None]
